FAERS Safety Report 23588699 (Version 1)
Quarter: 2024Q1

REPORT INFORMATION
  Report Type: Spontaneous
  Country: PT (occurrence: PT)
  Receive Date: 20240302
  Receipt Date: 20240302
  Transmission Date: 20240410
  Serious: Yes (Hospitalization)
  Sender: FDA-Public Use
  Company Number: PT-TEVA-VS-3135620

PATIENT
  Age: 16 Year
  Sex: Male

DRUGS (2)
  1. AMBROXOL [Suspect]
     Active Substance: AMBROXOL
     Indication: Upper respiratory tract infection
     Dosage: UNK
     Route: 065
  2. ACETAMINOPHEN [Suspect]
     Active Substance: ACETAMINOPHEN
     Indication: Upper respiratory tract infection
     Dosage: UNK
     Route: 065

REACTIONS (1)
  - Pityriasis rubra pilaris [Unknown]
